FAERS Safety Report 7156243-X (Version None)
Quarter: 2010Q4

REPORT INFORMATION
  Report Type: 
  Country: None (occurrence: None)
  Receive Date: 20101214
  Receipt Date: 20101207
  Transmission Date: 20110411
  Serious: Yes (Other)
  Sender: FDA-Public Use
  Company Number: US-ELI_LILLY_AND_COMPANY-US201009007221

PATIENT
  Sex: Male

DRUGS (4)
  1. ALIMTA [Suspect]
     Indication: ADENOCARCINOMA
     Dosage: 500 MG/M2, 21 DAY CYCLE
     Dates: start: 20100827
  2. OTHER ANTIHYPERTENSIVES [Concomitant]
  3. FOLIC ACID [Concomitant]
  4. VIT B12 [Concomitant]

REACTIONS (1)
  - MUSCULOSKELETAL PAIN [None]
